FAERS Safety Report 14391488 (Version 1)
Quarter: 2018Q1

REPORT INFORMATION
  Report Type: Spontaneous
  Country: ES (occurrence: ES)
  Receive Date: 20180116
  Receipt Date: 20180116
  Transmission Date: 20180509
  Serious: Yes (Other)
  Sender: FDA-Public Use
  Company Number: ES-ASTRAZENECA-2018SE03009

PATIENT
  Age: 53 Year
  Sex: Male
  Weight: 79 kg

DRUGS (2)
  1. ROSUVASTATIN. [Suspect]
     Active Substance: ROSUVASTATIN
     Indication: ISCHAEMIC CARDIOMYOPATHY
     Route: 048
     Dates: start: 20160920, end: 20170711
  2. EZETIMIBE. [Interacting]
     Active Substance: EZETIMIBE
     Indication: MYOCARDIAL ISCHAEMIA
     Route: 048
     Dates: start: 20161114, end: 20170711

REACTIONS (4)
  - Blood creatine phosphokinase increased [Recovered/Resolved]
  - Hypertransaminasaemia [Recovered/Resolved]
  - Myopathy [Recovered/Resolved]
  - Drug interaction [Unknown]

NARRATIVE: CASE EVENT DATE: 20170703
